FAERS Safety Report 22248338 (Version 1)
Quarter: 2023Q2

REPORT INFORMATION
  Report Type: Spontaneous
  Country: IT (occurrence: IT)
  Receive Date: 20230425
  Receipt Date: 20230425
  Transmission Date: 20230721
  Serious: Yes (Hospitalization, Other)
  Sender: FDA-Public Use
  Company Number: IT-UCBSA-2023020996

PATIENT
  Age: 5 Year
  Sex: Male

DRUGS (8)
  1. LEVETIRACETAM [Suspect]
     Active Substance: LEVETIRACETAM
     Indication: Encephalitis autoimmune
     Dosage: 50 MILLIGRAM/KILOGRAM, HIGH DOSE
  2. LEVETIRACETAM [Suspect]
     Active Substance: LEVETIRACETAM
     Indication: Febrile infection-related epilepsy syndrome
  3. METHYLPREDNISOLONE [Suspect]
     Active Substance: METHYLPREDNISOLONE
     Indication: Immune-mediated encephalitis
     Dosage: HIGH-DOSE
     Route: 042
  4. METHYLPREDNISOLONE [Suspect]
     Active Substance: METHYLPREDNISOLONE
     Indication: Febrile infection-related epilepsy syndrome
  5. VALPROIC ACID [Suspect]
     Active Substance: VALPROIC ACID
     Indication: Febrile infection-related epilepsy syndrome
     Dosage: UP TO 30 MG/KG
  6. VALPROIC ACID [Suspect]
     Active Substance: VALPROIC ACID
     Indication: Immune-mediated encephalitis
  7. PHENOBARBITAL [Concomitant]
     Active Substance: PHENOBARBITAL
     Indication: Febrile infection-related epilepsy syndrome
  8. PHENYTOIN [Concomitant]
     Active Substance: PHENYTOIN
     Indication: Febrile infection-related epilepsy syndrome

REACTIONS (1)
  - Cerebral atrophy [Recovered/Resolved]
